FAERS Safety Report 5293930-2 (Version None)
Quarter: 2007Q2

REPORT INFORMATION
  Report Type: 
  Country: None (occurrence: None)
  Receive Date: 20070411
  Receipt Date: 20070330
  Transmission Date: 20071010
  Serious: Yes (Hospitalization, Other)
  Sender: FDA-Public Use
  Company Number: FR-PFIZER INC-2007027254

PATIENT
  Age: 80 Year
  Sex: Female

DRUGS (11)
  1. ATARAX [Suspect]
     Indication: ANXIETY
     Dosage: DAILY DOSE:75MG
     Route: 048
  2. ATARAX [Suspect]
     Dosage: DAILY DOSE:50MG
     Route: 048
     Dates: start: 20061121, end: 20061122
  3. ATARAX [Suspect]
     Dosage: DAILY DOSE:25MG
     Route: 048
     Dates: start: 20061123, end: 20061123
  4. TERCIAN [Suspect]
     Dosage: DAILY DOSE:15MG
     Route: 048
  5. TERCIAN [Suspect]
     Dosage: DAILY DOSE:15DROP
     Route: 048
     Dates: start: 20061120, end: 20061120
  6. TERCIAN [Suspect]
     Dosage: DAILY DOSE:5DROP
     Route: 048
     Dates: start: 20061121, end: 20061122
  7. PROZAC [Concomitant]
     Indication: DEPRESSION
     Route: 048
  8. PROZAC [Concomitant]
     Dosage: DAILY DOSE:20MG
     Route: 048
  9. TRAMADOL HCL [Concomitant]
     Indication: ARTHROPATHY
     Dosage: TEXT:1 DF
     Route: 048
  10. ZOCOR [Concomitant]
     Indication: HYPERCHOLESTEROLAEMIA
     Dosage: DAILY DOSE:20MG
     Route: 048
  11. NOCTRAN 10 [Concomitant]
     Dosage: TEXT:1 DF
     Route: 048

REACTIONS (3)
  - EXTRAPYRAMIDAL DISORDER [None]
  - FALL [None]
  - GAIT DISTURBANCE [None]
